FAERS Safety Report 8847751 (Version 1)
Quarter: 2012Q4

REPORT INFORMATION
  Report Type: 
  Country: US (occurrence: US)
  Receive Date: 20121018
  Receipt Date: 20121018
  Transmission Date: 20130627
  Serious: Yes (Hospitalization, Disabling, Other)
  Sender: FDA-Public Use
  Company Number: US-009507513-2010SP038523

PATIENT
  Age: 25 None
  Sex: Female
  Weight: 165.56 kg

DRUGS (1)
  1. NUVARING [Suspect]
     Indication: CONTRACEPTION
     Dates: start: 20080610, end: 20080626

REACTIONS (9)
  - Cerebrovascular accident [Recovered/Resolved]
  - Transient ischaemic attack [Recovered/Resolved]
  - Thrombosis [Unknown]
  - Hypertension [Unknown]
  - Low density lipoprotein abnormal [Unknown]
  - Mitral valve incompetence [Unknown]
  - Tricuspid valve incompetence [Unknown]
  - Palpitations [Unknown]
  - Chest discomfort [Unknown]
